FAERS Safety Report 14533030 (Version 1)
Quarter: 2018Q1

REPORT INFORMATION
  Report Type: Spontaneous
  Country: AM (occurrence: AM)
  Receive Date: 20180215
  Receipt Date: 20180215
  Transmission Date: 20180509
  Serious: Yes (Other)
  Sender: FDA-Public Use
  Company Number: AM-INGENUS PHARMACEUTICALS NJ, LLC-ING201802-000146

PATIENT
  Age: 51 Year
  Sex: Male

DRUGS (3)
  1. ALBUMIN [Concomitant]
     Active Substance: ALBUMIN HUMAN
     Route: 042
  2. DEXAMETHASONE. [Concomitant]
     Active Substance: DEXAMETHASONE
  3. PROBENECID AND COLCHICINE [Suspect]
     Active Substance: COLCHICINE\PROBENECID
     Indication: FAMILIAL MEDITERRANEAN FEVER

REACTIONS (2)
  - Drug intolerance [Unknown]
  - Angioedema [Unknown]
